FAERS Safety Report 7458128-8 (Version None)
Quarter: 2011Q2

REPORT INFORMATION
  Report Type: 
  Country: None (occurrence: None)
  Receive Date: 20110504
  Receipt Date: 20110422
  Transmission Date: 20111010
  Serious: Yes (Other)
  Sender: FDA-Public Use
  Company Number: PHHY2011TR33190

PATIENT
  Sex: Female
  Weight: 10.5 kg

DRUGS (3)
  1. EXJADE [Suspect]
     Indication: THALASSAEMIA BETA
     Dosage: 375 MG, DAILY
     Dates: start: 20100419, end: 20110418
  2. DEFERIPRONE [Interacting]
     Indication: CHELATION THERAPY
     Dosage: UNK
     Dates: start: 20110407
  3. EXJADE [Interacting]
     Dosage: 375 MG, UNK

REACTIONS (6)
  - HEPATIC ENZYME INCREASED [None]
  - DRUG INTERACTION [None]
  - NAUSEA [None]
  - ABDOMINAL PAIN UPPER [None]
  - VOMITING [None]
  - HEPATITIS TOXIC [None]
